FAERS Safety Report 9605216 (Version 1)
Quarter: 2013Q4

REPORT INFORMATION
  Report Type: Spontaneous
  Country: JP (occurrence: JP)
  Receive Date: 20131008
  Receipt Date: 20131008
  Transmission Date: 20140711
  Serious: Yes (Other)
  Sender: FDA-Public Use
  Company Number: JP-PFIZER INC-2013282989

PATIENT
  Age: 79 Year
  Sex: Female

DRUGS (2)
  1. METHYLPREDNISOLONE SODIUM SUCCINATE [Suspect]
     Indication: NEPHROTIC SYNDROME
     Dosage: 500 MG DAILY
  2. PREDNISOLONE [Suspect]
     Indication: NEPHROTIC SYNDROME
     Dosage: 30 MG DAILY

REACTIONS (2)
  - Drug effect decreased [Unknown]
  - Thrombotic microangiopathy [Recovering/Resolving]
